FAERS Safety Report 20823299 (Version 1)
Quarter: 2022Q2

REPORT INFORMATION
  Report Type: Spontaneous
  Country: US (occurrence: US)
  Receive Date: 20220513
  Receipt Date: 20220513
  Transmission Date: 20220721
  Serious: No
  Sender: FDA-Public Use
  Company Number: US-SA-SAC20220510000216

PATIENT
  Age: 27 Year
  Sex: Female

DRUGS (6)
  1. DUPIXENT [Suspect]
     Active Substance: DUPILUMAB
     Indication: Dermatitis atopic
     Dosage: DOSE: 300MG/2ML
     Route: 058
     Dates: start: 20220317
  2. BOTOX [Concomitant]
     Active Substance: ONABOTULINUMTOXINA
  3. EUCRISA [Concomitant]
     Active Substance: CRISABOROLE
  4. SYNALAR [Concomitant]
     Active Substance: FLUOCINOLONE ACETONIDE
  5. ZYRTEC [Concomitant]
     Active Substance: CETIRIZINE HYDROCHLORIDE
  6. JUNEL FE 1/20 [Concomitant]
     Active Substance: ETHINYL ESTRADIOL\NORETHINDRONE ACETATE

REACTIONS (1)
  - Dermatitis atopic [Unknown]
